FAERS Safety Report 5357730-7 (Version None)
Quarter: 2007Q2

REPORT INFORMATION
  Report Type: 
  Country: None (occurrence: None)
  Receive Date: 20070614
  Receipt Date: 20070606
  Transmission Date: 20071010
  Serious: Yes (Hospitalization)
  Sender: FDA-Public Use
  Company Number: DE-BOEHRINGER INGELHEIM PHARMACEUTICALS, INC.-2007-DE-03347DE

PATIENT
  Age: 66 Year
  Sex: Male

DRUGS (1)
  1. SIFROL [Suspect]

REACTIONS (1)
  - VASCULITIS [None]
